FAERS Safety Report 17674494 (Version 1)
Quarter: 2020Q2

REPORT INFORMATION
  Report Type: Spontaneous
  Country: US (occurrence: US)
  Receive Date: 20200415
  Receipt Date: 20200415
  Transmission Date: 20200714
  Serious: No
  Sender: FDA-Public Use
  Company Number: None

PATIENT
  Sex: Female
  Weight: 77.11 kg

DRUGS (3)
  1. ELIQUIS [Suspect]
     Active Substance: APIXABAN
     Indication: ANTICOAGULANT THERAPY
     Dosage: ?          QUANTITY:2 DF DOSAGE FORM;?
     Route: 048
     Dates: start: 202001
  2. LOSATAN [Concomitant]
     Active Substance: LOSARTAN
  3. TARCEVA [Concomitant]
     Active Substance: ERLOTINIB HYDROCHLORIDE

REACTIONS (3)
  - Arthralgia [None]
  - Poor peripheral circulation [None]
  - Drug intolerance [None]
